FAERS Safety Report 20603114 (Version 2)
Quarter: 2022Q2

REPORT INFORMATION
  Report Type: Spontaneous
  Country: US (occurrence: None)
  Receive Date: 20220316
  Receipt Date: 20220428
  Transmission Date: 20220720
  Serious: No
  Sender: FDA-Public Use
  Company Number: 2022A080246

PATIENT
  Age: 973 Month
  Sex: Female
  Weight: 77.1 kg

DRUGS (2)
  1. BUDESONIDE\FORMOTEROL\GLYCOPYRRONIUM [Suspect]
     Active Substance: BUDESONIDE\FORMOTEROL\GLYCOPYRRONIUM
     Indication: Chronic obstructive pulmonary disease
     Dosage: TWO PUFFS TWO TIMES A DAY, 160MCG/9MCG/4.8MCG
     Route: 055
     Dates: start: 2021
  2. BEVESPI AEROSPHERE [Concomitant]
     Active Substance: FORMOTEROL FUMARATE\GLYCOPYRROLATE
     Indication: Chronic obstructive pulmonary disease
     Dosage: 9/4.8 MCG, TWO PUFFS TWO TIMES A DAY
     Route: 055
     Dates: end: 2021

REACTIONS (5)
  - Dyspnoea [Recovered/Resolved]
  - Dyspnoea [Recovered/Resolved]
  - Device use issue [Recovered/Resolved]
  - Incorrect dose administered by device [Recovered/Resolved]
  - Device delivery system issue [Unknown]

NARRATIVE: CASE EVENT DATE: 20220101
